FAERS Safety Report 8786484 (Version 1)
Quarter: 2012Q4

REPORT INFORMATION
  Report Type: 
  Country: PL (occurrence: PL)
  Receive Date: 20120914
  Receipt Date: 20120914
  Transmission Date: 20130627
  Serious: Yes (Other)
  Sender: FDA-Public Use
  Company Number: PHHY2012PL079018

PATIENT
  Sex: Male

DRUGS (4)
  1. PAMIDRONATE [Suspect]
     Indication: METASTASES TO BONE
     Dosage: 540 mg
  2. PAMIDRONATE [Suspect]
     Indication: PAIN
  3. TELMISARTAN [Concomitant]
  4. METHYLPREDNISOLONE [Concomitant]

REACTIONS (4)
  - Renal tubular atrophy [Unknown]
  - Focal segmental glomerulosclerosis [Unknown]
  - Kidney fibrosis [Unknown]
  - Haemodialysis [None]
